FAERS Safety Report 5382980-3 (Version None)
Quarter: 2007Q3

REPORT INFORMATION
  Report Type: 
  Country: None (occurrence: None)
  Receive Date: 20070710
  Receipt Date: 20070702
  Transmission Date: 20080115
  Serious: Yes (Life-Threatening, Hospitalization)
  Sender: FDA-Public Use
  Company Number: B0471016A

PATIENT
  Age: 59 Year
  Sex: Female
  Weight: 66 kg

DRUGS (7)
  1. SERETIDE [Suspect]
     Indication: BRONCHOSPASM
     Dosage: 1ACTU SINGLE DOSE
     Route: 055
     Dates: start: 20070508, end: 20070508
  2. SPIRIVA [Suspect]
     Indication: BRONCHOSPASM
     Dosage: 18UG PER DAY
     Route: 055
     Dates: start: 20070508, end: 20070508
  3. CEFUROXIME [Suspect]
     Indication: BRONCHITIS
     Dosage: 500MG PER DAY
     Dates: start: 20070508, end: 20070508
  4. COZAAR [Concomitant]
     Indication: HYPERTENSION
     Dosage: 50MG PER DAY
  5. SELECTOL [Concomitant]
     Indication: HYPERTENSION
  6. ALLOPURINOL [Concomitant]
     Indication: GOUT
  7. IRON [Concomitant]
     Indication: IRON DEFICIENCY

REACTIONS (16)
  - ANAPHYLACTIC SHOCK [None]
  - ANGIOEDEMA [None]
  - BLOOD CREATININE INCREASED [None]
  - BLOOD LACTATE DEHYDROGENASE INCREASED [None]
  - BLOOD PRESSURE DECREASED [None]
  - BLOOD SODIUM DECREASED [None]
  - BRONCHOSPASM [None]
  - C-REACTIVE PROTEIN INCREASED [None]
  - FIBRIN D DIMER INCREASED [None]
  - GAMMA-GLUTAMYLTRANSFERASE INCREASED [None]
  - HAEMATOCRIT INCREASED [None]
  - HAEMOGLOBIN INCREASED [None]
  - LYMPHOCYTE COUNT DECREASED [None]
  - NEUTROPHIL COUNT INCREASED [None]
  - PARAESTHESIA ORAL [None]
  - WHITE BLOOD CELL COUNT INCREASED [None]
